FAERS Safety Report 8991162 (Version 1)
Quarter: 2012Q4

REPORT INFORMATION
  Report Type: Spontaneous
  Country: US (occurrence: None)
  Receive Date: 20121219
  Receipt Date: 20121219
  Transmission Date: 20130627
  Serious: Yes (Life-Threatening, Other)
  Sender: FDA-Public Use
  Company Number: ADR-2012-02253

PATIENT
  Sex: Female

DRUGS (2)
  1. BACLOFEN INTRATHECAL [Suspect]
     Indication: SPASTICITY
  2. UNKNOWN INTRACTABLE MEDICATIONS [Concomitant]

REACTIONS (4)
  - Drug ineffective [None]
  - Adverse reaction [None]
  - Overdose [None]
  - Cardiac arrest [None]
